FAERS Safety Report 7707249-0 (Version None)
Quarter: 2011Q3

REPORT INFORMATION
  Report Type: 
  Country: None (occurrence: None)
  Receive Date: 20110824
  Receipt Date: 20110810
  Transmission Date: 20111222
  Serious: Yes (Disabling)
  Sender: FDA-Public Use
  Company Number: PHHY2011ZA13281

PATIENT

DRUGS (1)
  1. COARTEM [Suspect]
     Indication: MALARIA
     Dosage: 20 / 120 MG
     Dates: start: 20110215

REACTIONS (1)
  - DYSARTHRIA [None]
